FAERS Safety Report 7461097-8 (Version None)
Quarter: 2011Q2

REPORT INFORMATION
  Report Type: 
  Country: None (occurrence: None)
  Receive Date: 20110505
  Receipt Date: 20110425
  Transmission Date: 20111010
  Serious: Yes (Hospitalization)
  Sender: FDA-Public Use
  Company Number: US-BAXTER-2011BH010332

PATIENT
  Age: 66 Year
  Sex: Female

DRUGS (2)
  1. CEFTAZIDIME [Suspect]
     Indication: PERITONITIS
  2. DIANEAL [Suspect]
     Indication: PERITONEAL DIALYSIS

REACTIONS (3)
  - MENTAL STATUS CHANGES [None]
  - CONFUSIONAL STATE [None]
  - PERITONITIS BACTERIAL [None]
